FAERS Safety Report 14412328 (Version 2)
Quarter: 2018Q1

REPORT INFORMATION
  Report Type: Spontaneous
  Country: VN (occurrence: VN)
  Receive Date: 20180119
  Receipt Date: 20180309
  Transmission Date: 20180509
  Serious: Yes (Death, Hospitalization)
  Sender: FDA-Public Use
  Company Number: VN-ASTRAZENECA-2018SE05948

PATIENT
  Age: 56 Year
  Sex: Male
  Weight: 50 kg

DRUGS (5)
  1. ASPIRIN. [Suspect]
     Active Substance: ASPIRIN
     Indication: ANGINA UNSTABLE
     Dosage: 81.0MG UNKNOWN
     Route: 048
     Dates: start: 20171225, end: 20171229
  2. LOVENOX [Suspect]
     Active Substance: ENOXAPARIN SODIUM
     Indication: PERCUTANEOUS CORONARY INTERVENTION
     Dosage: 0.3ML UNKNOWN
     Route: 048
     Dates: start: 20171226
  3. BRILINTA [Suspect]
     Active Substance: TICAGRELOR
     Indication: ANGINA UNSTABLE
     Dosage: LOADING OF 180MG, THEN 90 MG TWO TIMES A DAY
     Route: 048
     Dates: start: 20171225, end: 20171227
  4. LISINOPRIL. [Concomitant]
     Active Substance: LISINOPRIL
     Indication: ANGINA UNSTABLE
     Dosage: 5.0MG UNKNOWN
     Route: 048
     Dates: start: 20171225, end: 20171228
  5. ATORVASTATIN [Concomitant]
     Active Substance: ATORVASTATIN
     Indication: ANGINA UNSTABLE
     Dosage: 40.0MG UNKNOWN
     Route: 048
     Dates: start: 20171225, end: 20171229

REACTIONS (1)
  - Intraventricular haemorrhage [Fatal]

NARRATIVE: CASE EVENT DATE: 20171227
